FAERS Safety Report 9723397 (Version 4)
Quarter: 2014Q1

REPORT INFORMATION
  Report Type: Spontaneous
  Country: IE (occurrence: IE)
  Receive Date: 20131202
  Receipt Date: 20140129
  Transmission Date: 20141002
  Serious: Yes (Hospitalization)
  Sender: FDA-Public Use
  Company Number: GB-BRISTOL-MYERS SQUIBB COMPANY-19849124

PATIENT
  Sex: Female

DRUGS (9)
  1. WARFARIN SODIUM [Suspect]
  2. MEGACE [Concomitant]
     Indication: UTERINE CANCER
     Dates: start: 20130924
  3. BISOPROLOL [Concomitant]
     Dosage: TABS
  4. ATORVASTATIN [Concomitant]
     Dosage: TABS
  5. RAMIPRIL [Concomitant]
  6. DILTIAZEM HCL [Concomitant]
     Dosage: 60 MG CAPSULE
  7. TIOTROPIUM BROMIDE [Concomitant]
     Route: 055
  8. ESOMEPRAZOLE [Concomitant]
  9. FLONASE [Concomitant]
     Dosage: 1DF:1 PUFF ?250 MCG/SALMETROL 25 MCG

REACTIONS (2)
  - Fall [Unknown]
  - Cerebral haemorrhage [Unknown]
